FAERS Safety Report 21455600 (Version 1)
Quarter: 2022Q4

REPORT INFORMATION
  Report Type: Spontaneous
  Country: US (occurrence: None)
  Receive Date: 20221014
  Receipt Date: 20221014
  Transmission Date: 20230113
  Serious: No
  Sender: FDA-Public Use
  Company Number: US-Hikma Pharmaceuticals USA Inc.-US-H14001-22-00841

PATIENT
  Age: 84 Year
  Sex: Female

DRUGS (2)
  1. COLCHICINE [Suspect]
     Active Substance: COLCHICINE
     Indication: Pain
     Route: 048
     Dates: start: 20220320
  2. COLCHICINE [Suspect]
     Active Substance: COLCHICINE
     Indication: Gout

REACTIONS (2)
  - Headache [Unknown]
  - Drug ineffective [Unknown]
